FAERS Safety Report 8139751-4 (Version None)
Quarter: 2012Q1

REPORT INFORMATION
  Report Type: 
  Country: None (occurrence: None)
  Receive Date: 20120215
  Receipt Date: 20120206
  Transmission Date: 20120608
  Serious: Yes (Other)
  Sender: FDA-Public Use
  Company Number: US-JNJFOC-20120203521

PATIENT
  Age: 82 Year
  Sex: Female

DRUGS (13)
  1. ASCORBIC ACID [Concomitant]
  2. ATIVAN [Concomitant]
     Indication: ANXIETY
  3. MICONAZOLE [Concomitant]
     Indication: PSORIASIS
  4. FIBERCON [Concomitant]
  5. OXYCODONE HCL [Concomitant]
  6. VITAMIN B3 [Concomitant]
  7. XALATAN [Concomitant]
  8. LOVAZA [Concomitant]
  9. PREMARIN [Concomitant]
     Route: 067
  10. OS-CAL D [Concomitant]
  11. M.V.I. [Concomitant]
  12. XARELTO [Suspect]
     Indication: KNEE ARTHROPLASTY
     Route: 048
     Dates: start: 20120201
  13. ZANTAC [Concomitant]

REACTIONS (4)
  - HEADACHE [None]
  - SWOLLEN TONGUE [None]
  - GLOSSODYNIA [None]
  - TONGUE DRY [None]
